FAERS Safety Report 24047051 (Version 1)
Quarter: 2024Q3

REPORT INFORMATION
  Report Type: Spontaneous
  Country: US (occurrence: None)
  Receive Date: 20240702
  Receipt Date: 20240702
  Transmission Date: 20241016
  Serious: Yes (unspecified)
  Sender: Public
  Company Number: None

PATIENT
  Age: 23 Year
  Sex: Female

DRUGS (1)
  1. IRON DEXTRAN [Suspect]
     Active Substance: IRON DEXTRAN

REACTIONS (6)
  - Infusion related reaction [None]
  - Dyspnoea [None]
  - Abdominal pain [None]
  - Foetal distress syndrome [None]
  - Caesarean section [None]
  - Exposure during pregnancy [None]

NARRATIVE: CASE EVENT DATE: 20240618
